FAERS Safety Report 10929019 (Version 1)
Quarter: 2015Q1

REPORT INFORMATION
  Report Type: Spontaneous
  Country: IT (occurrence: IT)
  Receive Date: 20150319
  Receipt Date: 20150319
  Transmission Date: 20150721
  Serious: Yes (Hospitalization)
  Sender: FDA-Public Use
  Company Number: IT-TEVA-547375ACC

PATIENT
  Age: 55 Year
  Sex: Male
  Weight: 92 kg

DRUGS (11)
  1. SELEPARINA - 5700 UI ANTIXA/0,6ML SOLUZIONE INIETTABILE [Concomitant]
     Indication: PRODUCT USED FOR UNKNOWN INDICATION
     Dosage: 2 DF
     Route: 058
  2. DELTACORTENE [Concomitant]
     Active Substance: PREDNISONE
     Indication: PRODUCT USED FOR UNKNOWN INDICATION
     Dosage: 37.5 G
  3. FERRO-GRAD - 105 MG COMPRESSE A RILASCIO PROLUNGATO [Concomitant]
     Indication: PRODUCT USED FOR UNKNOWN INDICATION
     Dosage: 1 DF
     Route: 048
  4. APIDRA - 100 U/ML SOLUZIONE INIETTABILE [Concomitant]
     Indication: TYPE 2 DIABETES MELLITUS
     Dosage: 22 DF
     Route: 058
  5. CARDICOR - COMPRESSE 2.5 MG [Concomitant]
     Indication: PRODUCT USED FOR UNKNOWN INDICATION
     Dosage: 5 MILLIGRAM DAILY; 5 MG DAILY
     Route: 048
  6. TAPAZOLE - 5 MG COMPRESSE [Concomitant]
     Indication: HYPERTHYROIDISM
     Dosage: 40 MILLIGRAM DAILY; 20 MG 2 TIMES PER DAY(S)
     Route: 048
     Dates: start: 20150129, end: 20150309
  7. PROTEGRA - 225 MG + 225 MG COMPRESSE [Concomitant]
     Indication: PRODUCT USED FOR UNKNOWN INDICATION
     Dosage: 2 DF
     Route: 048
  8. AMIODARONE HYDROCHLORIDE. [Suspect]
     Active Substance: AMIODARONE HYDROCHLORIDE
     Indication: ATRIAL FIBRILLATION
     Dosage: 200 MILLIGRAM DAILY; 200 MG DAILY
     Route: 048
     Dates: start: 20120101, end: 20150129
  9. OMNIPAQUE [Suspect]
     Active Substance: IOHEXOL
     Indication: COMPUTERISED TOMOGRAM ABDOMEN
     Dosage: 110 ML TOTAL
     Route: 042
     Dates: start: 20150129, end: 20150129
  10. AUGMENTIN [Concomitant]
     Active Substance: AMOXICILLIN\CLAVULANATE POTASSIUM
     Indication: BRONCHITIS
     Dosage: 2 DF
     Route: 048
  11. LANTUS - 100 U/ML SOLUZIONE INIETTABILE [Concomitant]
     Indication: TYPE 2 DIABETES MELLITUS
     Dosage: 24 DF
     Route: 058

REACTIONS (4)
  - Medication error [Recovering/Resolving]
  - Hyperthyroidism [Recovering/Resolving]
  - Atrial fibrillation [Recovering/Resolving]
  - Palpitations [Recovering/Resolving]

NARRATIVE: CASE EVENT DATE: 20150219
